FAERS Safety Report 18904694 (Version 3)
Quarter: 2021Q2

REPORT INFORMATION
  Report Type: Report from Study
  Country: AU (occurrence: AU)
  Receive Date: 20210217
  Receipt Date: 20210412
  Transmission Date: 20210717
  Serious: Yes (Hospitalization)
  Sender: FDA-Public Use
  Company Number: AU-TG THERAPEUTICS INC.-TGT000165

PATIENT

DRUGS (42)
  1. PREDNISOLONE. [Suspect]
     Active Substance: PREDNISOLONE
     Dosage: 15 MILLIGRAM, QD
     Route: 048
     Dates: start: 20210110
  2. IMMUNOGLOBULIN                     /00025201/ [Concomitant]
     Active Substance: HUMAN IMMUNOGLOBULIN G
     Indication: HYPOGAMMAGLOBULINAEMIA
     Dosage: 20 G, MONTHLY
     Route: 042
     Dates: start: 20190717
  3. RABEPRAZOLE [Concomitant]
     Active Substance: RABEPRAZOLE
     Indication: DYSPEPSIA
     Dosage: 50 MG, QD
     Route: 048
     Dates: start: 20191115
  4. RABEPRAZOLE [Concomitant]
     Active Substance: RABEPRAZOLE
     Dosage: 20 MILLIGRAM, QD
     Route: 048
     Dates: start: 20201123
  5. LORATADINE. [Concomitant]
     Active Substance: LORATADINE
     Indication: PREMEDICATION
     Dosage: 10 MG, PRN
     Route: 048
     Dates: start: 20191101
  6. PARACETAMOL [Concomitant]
     Active Substance: ACETAMINOPHEN
     Indication: PREMEDICATION
     Dosage: 1000 MG, PRN
     Route: 048
     Dates: start: 20191101
  7. PARACETAMOL [Concomitant]
     Active Substance: ACETAMINOPHEN
     Indication: ORGANISING PNEUMONIA
     Dosage: 1 GRAM, PRN
     Route: 048
     Dates: start: 20201116
  8. ENTECAVIR. [Concomitant]
     Active Substance: ENTECAVIR
     Indication: HEPATITIS B
  9. RESPRIM [Concomitant]
     Active Substance: SULFAMETHOXAZOLE\TRIMETHOPRIM
     Indication: INFECTION PROPHYLAXIS
     Dosage: 2 DOSAGE FORM, TWICE WEEKLY
     Route: 048
     Dates: start: 20201014
  10. BUDESONIDE. [Concomitant]
     Active Substance: BUDESONIDE
     Indication: CHRONIC SINUSITIS
     Dosage: 2 MG, QD
     Route: 045
     Dates: start: 201806
  11. MUCOSOOTHE [Concomitant]
     Indication: DYSPEPSIA
     Dosage: 15 ML, PRN
     Route: 048
     Dates: start: 20191115
  12. SALINE                             /00075401/ [Concomitant]
     Active Substance: SODIUM CHLORIDE
     Indication: CHRONIC SINUSITIS
     Dosage: 1 DOSAGE FORM, PRN
     Route: 045
     Dates: start: 20200117
  13. PARACETAMOL [Concomitant]
     Active Substance: ACETAMINOPHEN
     Indication: NEURALGIA
     Dosage: 1 GRAM, STAT
     Route: 048
     Dates: start: 20200102, end: 20200102
  14. VALACYCLOVIR                       /01269701/ [Concomitant]
     Active Substance: VALACYCLOVIR HYDROCHLORIDE
     Indication: PROPHYLAXIS
     Dosage: 500 MG, BID
     Route: 048
     Dates: start: 20200709
  15. QUETIAPINE. [Concomitant]
     Active Substance: QUETIAPINE
     Indication: INSOMNIA
     Dosage: 12.5 MILLIGRAM, PRN
     Route: 048
     Dates: start: 20200923
  16. TG?1701 [Suspect]
     Active Substance: INVESTIGATIONAL PRODUCT
     Dosage: 200 MILLIGRAM, QD
     Route: 048
     Dates: start: 20210317
  17. UBLITUXIMAB [Suspect]
     Active Substance: UBLITUXIMAB
     Indication: CHRONIC LYMPHOCYTIC LEUKAEMIA
     Dosage: 900 MILLIGRAM, EVERY 3 MONTHS
     Route: 042
     Dates: start: 20191101, end: 20201123
  18. UMBRALISIB [Suspect]
     Active Substance: UMBRALISIB
     Indication: CHRONIC LYMPHOCYTIC LEUKAEMIA
     Dosage: 800 MILLIGRAM, QD
     Route: 048
     Dates: start: 20191101
  19. BACTRIM DS [Concomitant]
     Active Substance: SULFAMETHOXAZOLE\TRIMETHOPRIM
     Indication: PROPHYLAXIS
     Dosage: 1 DF, Q2W, BID
     Route: 048
     Dates: start: 20191101
  20. RABEPRAZOLE [Concomitant]
     Active Substance: RABEPRAZOLE
     Indication: HIATUS HERNIA
     Dosage: 40 MILLIGRAM, QD
     Route: 048
     Dates: start: 20191101
  21. ENTECAVIR. [Concomitant]
     Active Substance: ENTECAVIR
     Indication: PROPHYLAXIS
     Dosage: 500 MICROGRAM, QD
     Route: 048
     Dates: start: 20200805
  22. CLOBETASOL [Concomitant]
     Active Substance: CLOBETASOL
     Indication: LICHEN PLANUS
     Dosage: 1 DOSAGE FORM, BID
     Route: 061
     Dates: start: 20200808, end: 20200822
  23. PREDNISOLONE. [Suspect]
     Active Substance: PREDNISOLONE
     Dosage: 25 MILLIGRAM, QD
     Route: 048
     Dates: start: 20201209, end: 20201216
  24. PREDNISOLONE. [Suspect]
     Active Substance: PREDNISOLONE
     Dosage: 20 MILLIGRAM, QD
     Route: 048
     Dates: start: 20201217, end: 20201223
  25. ALLOPURINOL. [Concomitant]
     Active Substance: ALLOPURINOL
     Indication: PROPHYLAXIS
     Dosage: 300 MG, QD
     Route: 048
     Dates: start: 20191101
  26. GASTROGEL                          /00018101/ [Concomitant]
     Indication: GASTROOESOPHAGEAL REFLUX DISEASE
     Dosage: 20 MILLILITER, STAT
     Route: 048
     Dates: start: 20201125, end: 20201125
  27. LORATADINE. [Concomitant]
     Active Substance: LORATADINE
     Indication: LICHEN PLANUS
     Dosage: 10 UNK
     Route: 048
     Dates: start: 20200425, end: 20200501
  28. UBLITUXIMAB [Suspect]
     Active Substance: UBLITUXIMAB
     Dosage: 900 MILLIGRAM, EVERY 3 MONTHLY
     Route: 042
     Dates: start: 20201221
  29. PREDNISOLONE. [Suspect]
     Active Substance: PREDNISOLONE
     Indication: ORGANISING PNEUMONIA
     Dosage: 50 MILLIGRAM, QD
     Route: 048
     Dates: start: 20201126, end: 20201202
  30. PREDNISOLONE. [Suspect]
     Active Substance: PREDNISOLONE
     Dosage: 5 MILLIGRAM, QD
     Route: 048
     Dates: start: 20210122
  31. SYMBICORT [Concomitant]
     Active Substance: BUDESONIDE\FORMOTEROL FUMARATE DIHYDRATE
     Indication: ASTHMA
     Dosage: 200/6 MICROGRAM, BID
     Route: 045
     Dates: start: 201711
  32. GASTROGEL                          /00018101/ [Concomitant]
     Indication: DYSPEPSIA
     Dosage: 10 ML, PRN
     Route: 048
     Dates: start: 20191115
  33. SAVLON ANTISEPTIC [Concomitant]
     Indication: LICHEN PLANUS
     Dosage: 1 DOSAGE FORM, PRN
     Route: 048
     Dates: start: 20200425
  34. TEMAZEPAM. [Concomitant]
     Active Substance: TEMAZEPAM
     Indication: INSOMNIA
     Dosage: 10 MILLIGRAM, QD
     Route: 048
     Dates: start: 20200923
  35. TG?1701 [Suspect]
     Active Substance: INVESTIGATIONAL PRODUCT
     Indication: CHRONIC LYMPHOCYTIC LEUKAEMIA
     Dosage: 200 MILLIGRAM, QD, CYCLE 12
     Route: 048
     Dates: start: 20191101, end: 20201209
  36. BUDESONIDE. [Concomitant]
     Active Substance: BUDESONIDE
     Indication: ASTHMA
  37. RABEPRAZOLE [Concomitant]
     Active Substance: RABEPRAZOLE
     Dosage: 200 MILLIGRAM, BID
     Dates: start: 20200924
  38. HYDROCORTISONE SODIUM SUCCINATE [Concomitant]
     Active Substance: HYDROCORTISONE SODIUM SUCCINATE
     Indication: PREMEDICATION
     Dosage: 250 MG, PRN
     Route: 042
     Dates: start: 20191101
  39. RESPRIM [Concomitant]
     Active Substance: SULFAMETHOXAZOLE\TRIMETHOPRIM
     Indication: INFLUENZA LIKE ILLNESS
     Dosage: 2 DOSAGE FORM, BID
     Route: 048
     Dates: start: 20201006, end: 20201013
  40. PREDNISOLONE. [Suspect]
     Active Substance: PREDNISOLONE
     Indication: INFLUENZA LIKE ILLNESS
     Dosage: 37.5 MILLIGRAM, QD
     Route: 048
     Dates: start: 20201203, end: 20201209
  41. NASONEX [Concomitant]
     Active Substance: MOMETASONE FUROATE
     Indication: CHRONIC SINUSITIS
     Dosage: 1 DF, PRN
     Route: 045
     Dates: start: 20200117
  42. CLOBETASOL [Concomitant]
     Active Substance: CLOBETASOL
     Dosage: 1 APPLICATION, PRN
     Route: 061
     Dates: start: 20200823

REACTIONS (2)
  - Mania [Recovered/Resolved]
  - Organising pneumonia [Not Recovered/Not Resolved]

NARRATIVE: CASE EVENT DATE: 20201112
